FAERS Safety Report 7120498-8 (Version None)
Quarter: 2010Q4

REPORT INFORMATION
  Report Type: 
  Country: None (occurrence: None)
  Receive Date: 20101124
  Receipt Date: 20101111
  Transmission Date: 20110411
  Serious: Yes (Hospitalization)
  Sender: FDA-Public Use
  Company Number: PE-SHIRE-SPV1-2010-02029

PATIENT
  Age: 11 Year
  Sex: Male

DRUGS (3)
  1. IDURSULFASE [Suspect]
     Indication: MUCOPOLYSACCHARIDOSIS II
     Dosage: 0.5 MG/KG, 1X/WEEK
     Route: 041
  2. VALPROIC ACID [Concomitant]
     Indication: CONVULSION
     Dosage: UNK
  3. LAMOTRIGINE [Concomitant]
     Indication: CONVULSION
     Dosage: UNK

REACTIONS (4)
  - ASPIRATION [None]
  - GRAND MAL CONVULSION [None]
  - INCREASED BRONCHIAL SECRETION [None]
  - SEVERE ACUTE RESPIRATORY SYNDROME [None]
